FAERS Safety Report 21178183 (Version 2)
Quarter: 2022Q3

REPORT INFORMATION
  Report Type: Report from Study
  Country: KR (occurrence: KR)
  Receive Date: 20220805
  Receipt Date: 20220912
  Transmission Date: 20221027
  Serious: Yes (Other)
  Sender: FDA-Public Use
  Company Number: KR-JNJFOC-20220758557

PATIENT
  Age: 19 Year
  Sex: Female
  Weight: 58.1 kg

DRUGS (1)
  1. ESKETAMINE [Suspect]
     Active Substance: ESKETAMINE
     Indication: Depression
     Dosage: MED KIT NUMBER: 100000939151, 100000939152, 100000939153
     Dates: start: 20220621, end: 20220621

REACTIONS (1)
  - Brain injury [Recovered/Resolved with Sequelae]

NARRATIVE: CASE EVENT DATE: 20220830
